FAERS Safety Report 4752750-5 (Version None)
Quarter: 2005Q3

REPORT INFORMATION
  Report Type: 
  Country: None (occurrence: None)
  Receive Date: 20050825
  Receipt Date: 20050823
  Transmission Date: 20060218
  Serious: Yes (Other)
  Sender: FDA-Public Use
  Company Number: US-ABBOTT-05P-163-0309090-00

PATIENT
  Sex: Female

DRUGS (2)
  1. HUMIRA [Suspect]
     Indication: DRUG USE FOR UNKNOWN INDICATION
     Route: 058
     Dates: start: 20050101
  2. INFLIXIMAB [Suspect]
     Indication: RHEUMATOID ARTHRITIS
     Dates: end: 20050101

REACTIONS (1)
  - HAIRY CELL LEUKAEMIA [None]
